FAERS Safety Report 25470854 (Version 1)
Quarter: 2025Q2

REPORT INFORMATION
  Report Type: Spontaneous
  Country: AU (occurrence: AU)
  Receive Date: 20250624
  Receipt Date: 20250624
  Transmission Date: 20250717
  Serious: Yes (Hospitalization, Other)
  Sender: AMGEN
  Company Number: AU-AMGEN-AUSSP2025121666

PATIENT
  Age: 80 Year
  Sex: Female

DRUGS (2)
  1. PROLIA [Suspect]
     Active Substance: DENOSUMAB
     Indication: Osteoporosis postmenopausal
     Route: 065
  2. FERRIC CARBOXYMALTOSE [Concomitant]
     Active Substance: FERRIC CARBOXYMALTOSE

REACTIONS (4)
  - Chronic kidney disease [Unknown]
  - Hypophosphataemia [Unknown]
  - Hypocalcaemia [Unknown]
  - Cardiac failure congestive [Unknown]
